FAERS Safety Report 11597934 (Version 4)
Quarter: 2016Q4

REPORT INFORMATION
  Report Type: Spontaneous
  Country: US (occurrence: US)
  Receive Date: 20151006
  Receipt Date: 20161027
  Transmission Date: 20170206
  Serious: Yes (Other)
  Sender: FDA-Public Use
  Company Number: US-ROCHE-1510405

PATIENT
  Sex: Male

DRUGS (4)
  1. ERIVEDGE [Suspect]
     Active Substance: VISMODEGIB
     Indication: BASAL CELL CARCINOMA
     Route: 048
     Dates: start: 20140920
  2. ATORVASTATIN [Concomitant]
     Active Substance: ATORVASTATIN
  3. LISINOPRIL. [Concomitant]
     Active Substance: LISINOPRIL
     Indication: PRODUCT USED FOR UNKNOWN INDICATION
  4. METOPROLOL. [Concomitant]
     Active Substance: METOPROLOL

REACTIONS (10)
  - Gastrointestinal disorder [Unknown]
  - Dizziness [Unknown]
  - Ill-defined disorder [Unknown]
  - Muscle spasms [Unknown]
  - Limb discomfort [Unknown]
  - Dysgeusia [Unknown]
  - Ageusia [Unknown]
  - Chest pain [Unknown]
  - Musculoskeletal stiffness [Unknown]
  - Arthropathy [Unknown]
